FAERS Safety Report 15184047 (Version 3)
Quarter: 2019Q2

REPORT INFORMATION
  Report Type: Spontaneous
  Country: FR (occurrence: FR)
  Receive Date: 20180723
  Receipt Date: 20190429
  Transmission Date: 20190711
  Serious: Yes (Death, Life-Threatening, Hospitalization)
  Sender: FDA-Public Use
  Company Number: FR-MYLANLABS-2018M1053972

PATIENT
  Age: 74 Year
  Sex: Male
  Weight: 70 kg

DRUGS (16)
  1. DEXAMETHASONE. [Suspect]
     Active Substance: DEXAMETHASONE
     Indication: PLASMA CELL MYELOMA
     Dosage: 40 MILLIGRAM, QW
     Route: 048
     Dates: start: 20160127, end: 20160224
  2. IMOVANE [Concomitant]
     Active Substance: ZOPICLONE
     Indication: INSOMNIA
     Dosage: 7.5 MILLIGRAM, QD
     Route: 048
  3. TARDYFERON [Concomitant]
     Active Substance: FERROUS SULFATE
     Indication: ANAEMIA PROPHYLAXIS
     Dosage: 160 MILLIGRAM, QD
     Route: 048
     Dates: start: 20160215
  4. REVLIMID [Suspect]
     Active Substance: LENALIDOMIDE
     Indication: PLASMA CELL MYELOMA
     Dosage: 25 MILLIGRAM, QD
     Route: 048
     Dates: start: 20160127, end: 20160216
  5. DILTIAZEM. [Concomitant]
     Active Substance: DILTIAZEM
     Indication: HYPERTENSION
     Dosage: 300 MILLIGRAM, QD
     Route: 048
  6. ENOXAPARIN SODIUM. [Concomitant]
     Active Substance: ENOXAPARIN SODIUM
     Indication: PRODUCT USED FOR UNKNOWN INDICATION
     Dosage: UNK
     Route: 065
  7. DEXAMETHASONE. [Suspect]
     Active Substance: DEXAMETHASONE
     Dosage: 40 MILLIGRAM, QD
     Route: 041
     Dates: start: 20160123
  8. PANTOPRAZOLE [Concomitant]
     Active Substance: PANTOPRAZOLE
     Indication: PROPHYLAXIS
     Dosage: 40 MILLIGRAM, QD
     Route: 048
  9. DOLIPRANE [Concomitant]
     Active Substance: ACETAMINOPHEN
     Indication: PAIN PROPHYLAXIS
     Dosage: 4000 MILLIGRAM, QD
     Route: 048
     Dates: start: 20160128
  10. MODOPAR [Concomitant]
     Active Substance: BENSERAZIDE HYDROCHLORIDE\LEVODOPA
     Indication: PARKINSON^S DISEASE
     Dosage: 750 MILLIGRAM, QD
     Route: 048
  11. CACIT D3 [Concomitant]
     Active Substance: CALCIUM\CHOLECALCIFEROL
     Indication: OSTEOPOROSIS
     Dosage: 1 GRAM, QD
     Route: 065
     Dates: start: 2015
  12. SPECIAFOLDINE [Concomitant]
     Active Substance: FOLIC ACID
     Indication: ANAEMIA
     Dosage: 10 MILLIGRAM, QD
     Route: 048
  13. DAFALGAN [Concomitant]
     Active Substance: ACETAMINOPHEN
     Indication: PAIN PROPHYLAXIS
     Dosage: 3 GRAM, QD
     Route: 048
     Dates: start: 20160120
  14. MIANSERINE                         /00390601/ [Concomitant]
     Active Substance: MIANSERIN
     Indication: DEPRESSION
     Dosage: 10 MILLIGRAM, QD
     Route: 048
  15. LOVENOX [Concomitant]
     Active Substance: ENOXAPARIN SODIUM
     Indication: THROMBOSIS PROPHYLAXIS
     Dosage: 0.4 MILLILITER, QD
     Route: 058
     Dates: start: 20160128
  16. DEXAMETHASONE. [Suspect]
     Active Substance: DEXAMETHASONE
     Indication: HYPERVISCOSITY SYNDROME
     Dosage: 40 MILLIGRAM, QD
     Route: 041
     Dates: start: 20160122

REACTIONS (6)
  - General physical health deterioration [Fatal]
  - Acute coronary syndrome [Recovered/Resolved]
  - Electrocardiogram ST segment elevation [Recovered/Resolved]
  - Staphylococcal sepsis [Recovered/Resolved with Sequelae]
  - Neutropenia [Not Recovered/Not Resolved]
  - Hyperviscosity syndrome [Recovered/Resolved]

NARRATIVE: CASE EVENT DATE: 20160122
